FAERS Safety Report 6881907-2 (Version None)
Quarter: 2010Q3

REPORT INFORMATION
  Report Type: 
  Country: None (occurrence: None)
  Receive Date: 20100727
  Receipt Date: 20100727
  Transmission Date: 20110219
  Serious: Yes (Hospitalization, Other)
  Sender: FDA-Public Use
  Company Number: None

PATIENT
  Sex: Female

DRUGS (1)
  1. WELLBUTRIN XL [Suspect]
     Dosage: B/4 4/9/07 WAS GIVEN GENERIC

REACTIONS (2)
  - GENERAL PHYSICAL HEALTH DETERIORATION [None]
  - PRODUCT SUBSTITUTION ISSUE [None]
